FAERS Safety Report 5697922-0 (Version None)
Quarter: 2008Q2

REPORT INFORMATION
  Report Type: 
  Country: None (occurrence: None)
  Receive Date: 20080408
  Receipt Date: 20080402
  Transmission Date: 20081010
  Serious: Yes (Hospitalization)
  Sender: FDA-Public Use
  Company Number: US-BRISTOL-MYERS SQUIBB COMPANY-14135396

PATIENT
  Age: 71 Year
  Sex: Male
  Weight: 77 kg

DRUGS (4)
  1. COUMADIN [Suspect]
     Dosage: 1 1/2 TAB OF 5 MG.06MAR08-5MG,07MAR08 1 1/2 OF 5MG,08MAR08,09MAR08 5MG/D,10MAR08,11MAR08 1  1/2 5MG
     Dates: start: 19961101
  2. VYTORIN [Concomitant]
  3. LISINOPRIL [Concomitant]
  4. ASPIRIN [Concomitant]

REACTIONS (6)
  - CONJUNCTIVAL HAEMORRHAGE [None]
  - EPISTAXIS [None]
  - INTERNATIONAL NORMALISED RATIO INCREASED [None]
  - MALLORY-WEISS SYNDROME [None]
  - STOMACH DISCOMFORT [None]
  - VOMITING [None]
